FAERS Safety Report 7942492-7 (Version None)
Quarter: 2011Q4

REPORT INFORMATION
  Report Type: 
  Country: None (occurrence: None)
  Receive Date: 20111128
  Receipt Date: 20111115
  Transmission Date: 20120403
  Serious: Yes (Other)
  Sender: FDA-Public Use
  Company Number: FR-GLAXOSMITHKLINE-B0733560C

PATIENT
  Sex: Female
  Weight: 69 kg

DRUGS (4)
  1. LAPATINIB [Suspect]
     Indication: BREAST CANCER METASTATIC
     Dosage: 1250MG PER DAY
     Route: 048
     Dates: start: 20110531
  2. SPASFON [Concomitant]
     Indication: ABDOMINAL PAIN
     Route: 048
     Dates: start: 20110614
  3. CYCLO 3 [Concomitant]
     Indication: HAEMORRHOIDS
     Route: 048
     Dates: start: 20110808, end: 20111004
  4. TAXOTERE [Suspect]
     Indication: BREAST CANCER METASTATIC
     Dosage: 75MGML CYCLIC
     Route: 042
     Dates: start: 20110531

REACTIONS (1)
  - CYTOLYTIC HEPATITIS [None]
